FAERS Safety Report 10150032 (Version 1)
Quarter: 2014Q2

REPORT INFORMATION
  Report Type: Spontaneous
  Country: MX (occurrence: MX)
  Receive Date: 20140502
  Receipt Date: 20140502
  Transmission Date: 20141212
  Serious: Yes (Disabling)
  Sender: FDA-Public Use
  Company Number: MX-009507513-1405MEX000231

PATIENT
  Age: 83 Year
  Sex: Female

DRUGS (2)
  1. INVANZ [Suspect]
     Indication: ESCHERICHIA INFECTION
     Dosage: INJECTABLE
     Dates: start: 201403, end: 201403
  2. INVANZ [Suspect]
     Indication: KLEBSIELLA INFECTION

REACTIONS (3)
  - Mobility decreased [Recovered/Resolved]
  - Abasia [Recovered/Resolved]
  - Muscular weakness [Unknown]
